FAERS Safety Report 20565863 (Version 1)
Quarter: 2022Q1

REPORT INFORMATION
  Report Type: Spontaneous
  Country: US (occurrence: US)
  Receive Date: 20220308
  Receipt Date: 20220308
  Transmission Date: 20220423
  Serious: Yes (Other)
  Sender: FDA-Public Use
  Company Number: US-MYLANLABS-2022M1017725

PATIENT
  Sex: Female

DRUGS (20)
  1. LAMOTRIGINE [Suspect]
     Active Substance: LAMOTRIGINE
     Indication: Partial seizures
     Dosage: UNK
     Route: 065
  2. LAMOTRIGINE [Suspect]
     Active Substance: LAMOTRIGINE
     Indication: Jeavons syndrome
  3. LEVETIRACETAM [Suspect]
     Active Substance: LEVETIRACETAM
     Indication: Partial seizures
     Dosage: UNK
     Route: 065
  4. LEVETIRACETAM [Suspect]
     Active Substance: LEVETIRACETAM
     Indication: Jeavons syndrome
  5. CLOBAZAM [Suspect]
     Active Substance: CLOBAZAM
     Indication: Partial seizures
     Dosage: UNK
     Route: 065
  6. CLOBAZAM [Suspect]
     Active Substance: CLOBAZAM
     Indication: Jeavons syndrome
  7. CANNABIDIOL [Concomitant]
     Active Substance: CANNABIDIOL
     Indication: Jeavons syndrome
     Dosage: 4 MILLIGRAM, TID (OIL; ARTISANAL; THREE TIMES A DAY)
     Route: 065
  8. CANNABIDIOL [Concomitant]
     Active Substance: CANNABIDIOL
     Indication: Partial seizures
  9. ZONISAMIDE [Concomitant]
     Active Substance: ZONISAMIDE
     Indication: Partial seizures
     Dosage: UNK
     Route: 065
  10. ZONISAMIDE [Concomitant]
     Active Substance: ZONISAMIDE
     Indication: Jeavons syndrome
  11. ETHOSUXIMIDE [Concomitant]
     Active Substance: ETHOSUXIMIDE
     Indication: Partial seizures
     Dosage: UNK
     Route: 065
  12. ETHOSUXIMIDE [Concomitant]
     Active Substance: ETHOSUXIMIDE
     Indication: Jeavons syndrome
  13. CLORAZEPATE DIPOTASSIUM [Concomitant]
     Active Substance: CLORAZEPATE DIPOTASSIUM
     Indication: Partial seizures
     Dosage: UNK
     Route: 065
  14. CLORAZEPATE DIPOTASSIUM [Concomitant]
     Active Substance: CLORAZEPATE DIPOTASSIUM
     Indication: Jeavons syndrome
  15. RUFINAMIDE [Concomitant]
     Active Substance: RUFINAMIDE
     Indication: Partial seizures
     Dosage: UNK
     Route: 065
  16. RUFINAMIDE [Concomitant]
     Active Substance: RUFINAMIDE
     Indication: Jeavons syndrome
  17. ACETAZOLAMIDE [Concomitant]
     Active Substance: ACETAZOLAMIDE
     Indication: Partial seizures
     Dosage: UNK
     Route: 065
  18. ACETAZOLAMIDE [Concomitant]
     Active Substance: ACETAZOLAMIDE
     Indication: Jeavons syndrome
  19. PERAMPANEL [Concomitant]
     Active Substance: PERAMPANEL
     Indication: Partial seizures
     Dosage: UNK
     Route: 065
  20. PERAMPANEL [Concomitant]
     Active Substance: PERAMPANEL
     Indication: Jeavons syndrome

REACTIONS (5)
  - Seizure [Unknown]
  - Condition aggravated [Unknown]
  - Depression [Unknown]
  - Affective disorder [Unknown]
  - Drug ineffective [Unknown]
